FAERS Safety Report 11115140 (Version 1)
Quarter: 2015Q2

REPORT INFORMATION
  Report Type: Spontaneous
  Country: US (occurrence: None)
  Receive Date: 20150514
  Receipt Date: 20150514
  Transmission Date: 20150821
  Serious: Yes (Other)
  Sender: FDA-Public Use
  Company Number: None

PATIENT
  Age: 77 Year
  Sex: Female
  Weight: 45.36 kg

DRUGS (2)
  1. VITAMIN D [Concomitant]
     Active Substance: CHOLECALCIFEROL
  2. FOSAMAX [Suspect]
     Active Substance: ALENDRONATE SODIUM
     Indication: OSTEOPOROSIS
     Dosage: 1 PILL 1X PER WEEK
     Route: 048
     Dates: start: 20150131, end: 20150509

REACTIONS (5)
  - Eye swelling [None]
  - Insomnia [None]
  - Groin pain [None]
  - Tooth injury [None]
  - Dry eye [None]

NARRATIVE: CASE EVENT DATE: 20150507
